FAERS Safety Report 25371277 (Version 2)
Quarter: 2025Q3

REPORT INFORMATION
  Report Type: Spontaneous
  Country: KR (occurrence: None)
  Receive Date: 20250529
  Receipt Date: 20250810
  Transmission Date: 20251020
  Serious: Yes (Hospitalization)
  Sender: ALEXION PHARMACEUTICALS
  Company Number: KR-AstraZeneca-2024000419052

PATIENT
  Age: 52 Year
  Sex: Male

DRUGS (2)
  1. BRILINTA [Interacting]
     Active Substance: TICAGRELOR
     Indication: Acute myocardial infarction
     Route: 065
  2. ROSUVASTATIN CALCIUM [Interacting]
     Active Substance: ROSUVASTATIN CALCIUM
     Indication: Acute myocardial infarction
     Route: 065

REACTIONS (1)
  - Liver function test increased [Recovered/Resolved]

NARRATIVE: CASE EVENT DATE: 20240129
